FAERS Safety Report 17790321 (Version 1)
Quarter: 2020Q2

REPORT INFORMATION
  Report Type: Spontaneous
  Country: IL (occurrence: IL)
  Receive Date: 20200515
  Receipt Date: 20200515
  Transmission Date: 20200714
  Serious: Yes (Other)
  Sender: FDA-Public Use
  Company Number: NVSC2020IL130572

PATIENT
  Age: 38 Year
  Sex: Male

DRUGS (1)
  1. RITALIN LA [Suspect]
     Active Substance: METHYLPHENIDATE HYDROCHLORIDE
     Indication: CONFUSIONAL STATE
     Dosage: 40 MG, QD
     Route: 065
     Dates: start: 20120502

REACTIONS (2)
  - Mental disorder [Unknown]
  - Syncope [Recovered/Resolved]
